FAERS Safety Report 12619701 (Version 1)
Quarter: 2016Q3

REPORT INFORMATION
  Report Type: Report from Study
  Country: GB (occurrence: GB)
  Receive Date: 20160803
  Receipt Date: 20160803
  Transmission Date: 20161109
  Serious: Yes (Other)
  Sender: FDA-Public Use
  Company Number: GB-ABBVIE-16K-167-1669874-00

PATIENT
  Age: 74 Year
  Sex: Female

DRUGS (2)
  1. METAMORPHINE [Concomitant]
     Indication: PRODUCT USED FOR UNKNOWN INDICATION
  2. HUMIRA [Suspect]
     Active Substance: ADALIMUMAB
     Indication: PRODUCT USED FOR UNKNOWN INDICATION
     Route: 058
     Dates: start: 20150630, end: 20160411

REACTIONS (9)
  - Sepsis [Recovered/Resolved]
  - Hordeolum [Unknown]
  - Nasopharyngitis [Not Recovered/Not Resolved]
  - Drug effect incomplete [Unknown]
  - Nasopharyngitis [Recovered/Resolved]
  - Hyperhidrosis [Not Recovered/Not Resolved]
  - Hangnail [Recovered/Resolved]
  - Laceration [Recovered/Resolved]
  - Localised infection [Recovered/Resolved]

NARRATIVE: CASE EVENT DATE: 20160607
